FAERS Safety Report 21086469 (Version 1)
Quarter: 2022Q3

REPORT INFORMATION
  Report Type: Report from Study
  Country: CA (occurrence: CA)
  Receive Date: 20220715
  Receipt Date: 20220715
  Transmission Date: 20221027
  Serious: Yes (Death, Hospitalization, Other)
  Sender: FDA-Public Use
  Company Number: CA-BEH-2022146776

PATIENT
  Age: 65 Year
  Sex: Female
  Weight: 58.5 kg

DRUGS (4)
  1. HAEMATE P [Suspect]
     Active Substance: ANTIHEMOPHILIC FACTOR HUMAN
     Indication: Von Willebrand^s disease
     Dosage: 2000 INTERNATIONAL UNIT, OD
     Route: 042
     Dates: start: 20210121
  2. HAEMATE P [Suspect]
     Active Substance: ANTIHEMOPHILIC FACTOR HUMAN
     Dosage: 2000 INTERNATIONAL UNIT, OD
     Route: 042
     Dates: start: 20210121
  3. HAEMATE P [Suspect]
     Active Substance: ANTIHEMOPHILIC FACTOR HUMAN
     Dosage: 2000 INTERNATIONAL UNIT, OD
     Route: 042
     Dates: start: 20210121
  4. HUMAN IMMUNOGLOBULIN G [Concomitant]
     Active Substance: HUMAN IMMUNOGLOBULIN G
     Dosage: UNK, Q3W
     Route: 042

REACTIONS (19)
  - Intestinal perforation [Unknown]
  - Hypotension [Unknown]
  - Peripheral swelling [Not Recovered/Not Resolved]
  - Blister [Unknown]
  - Skin ulcer [Unknown]
  - Erythema [Unknown]
  - Scab [Unknown]
  - Peripheral swelling [Unknown]
  - Blister infected [Unknown]
  - Erythema [Unknown]
  - Skin discolouration [Unknown]
  - Oedema peripheral [Unknown]
  - Flank pain [Unknown]
  - Localised infection [Unknown]
  - Oral candidiasis [Unknown]
  - Heart rate decreased [Unknown]
  - Hypotension [Unknown]
  - Chest discomfort [Unknown]
  - Death [Fatal]

NARRATIVE: CASE EVENT DATE: 20220601
